FAERS Safety Report 4591531-2 (Version None)
Quarter: 2005Q1

REPORT INFORMATION
  Report Type: 
  Country: None (occurrence: None)
  Receive Date: 20050222
  Receipt Date: 20050210
  Transmission Date: 20050727
  Serious: Yes (Hospitalization)
  Sender: FDA-Public Use
  Company Number: 2005029271

PATIENT
  Age: 12 Year
  Sex: Female

DRUGS (3)
  1. SOMATROPIN (SOMATROPIN) [Suspect]
     Indication: GROWTH RETARDATION
     Dosage: 1 MG, SUBCUTANEOUS
     Route: 058
     Dates: start: 20041025
  2. LACTULOSE [Concomitant]
  3. SENNA FRUIT (SENNA FRUIT) [Concomitant]

REACTIONS (1)
  - DIABETIC KETOACIDOSIS [None]
